FAERS Safety Report 5218039-5 (Version None)
Quarter: 2007Q1

REPORT INFORMATION
  Report Type: 
  Country: None (occurrence: None)
  Receive Date: 20061130
  Receipt Date: 20060523
  Transmission Date: 20070707
  Serious: Yes (Other)
  Sender: FDA-Public Use
  Company Number: US20061005431

PATIENT
  Sex: Female
  Weight: 68 kg

DRUGS (3)
  1. ZYPREXA [Suspect]
     Dosage: 15 MG, DAILY (1/D)
     Dates: start: 20031208, end: 20050701
  2. ATENOLOL [Concomitant]
  3. PREDNISONE TAB [Concomitant]

REACTIONS (2)
  - DIABETES MELLITUS NON-INSULIN-DEPENDENT [None]
  - PANCREATITIS [None]
